FAERS Safety Report 8560791-5 (Version None)
Quarter: 2012Q3

REPORT INFORMATION
  Report Type: 
  Country: None (occurrence: None)
  Receive Date: 20120802
  Receipt Date: 20120726
  Transmission Date: 20120928
  Serious: Yes (Death)
  Sender: FDA-Public Use
  Company Number: GB-MSD-1207GBR001552

PATIENT

DRUGS (7)
  1. MIRTAZAPINE [Suspect]
     Indication: DEPRESSED MOOD
     Dosage: 30 MG, UNK
     Route: 048
  2. ARIPIPRAZOLE [Suspect]
     Indication: SCHIZOPHRENIA
     Dosage: 10 MG, UNK
     Route: 048
  3. CLOZARIL [Suspect]
     Dosage: UNK
     Route: 048
     Dates: start: 19941205
  4. CLOZARIL [Suspect]
     Dosage: UNK
     Route: 048
     Dates: start: 20010701
  5. CLOZARIL [Suspect]
     Dosage: 450 MG, UNK
     Route: 048
  6. CITALOPRAM HYDROBROMIDE [Suspect]
     Indication: DEPRESSED MOOD
     Dosage: 40 MG, UNK
     Route: 048
  7. CLOZAPINE [Suspect]
     Indication: SCHIZOPHRENIA
     Dosage: 450 MG, UNK
     Route: 048

REACTIONS (3)
  - CARDIAC FAILURE CONGESTIVE [None]
  - ANTIPSYCHOTIC DRUG LEVEL ABOVE THERAPEUTIC [None]
  - CONGESTIVE CARDIOMYOPATHY [None]
